FAERS Safety Report 8564647 (Version 5)
Quarter: 2014Q1

REPORT INFORMATION
  Report Type: Spontaneous
  Country: US (occurrence: US)
  Receive Date: 20120516
  Receipt Date: 20140213
  Transmission Date: 20141002
  Serious: Yes (Hospitalization)
  Sender: FDA-Public Use
  Company Number: US-B.I. PHARMACEUTICALS,INC./RIDGEFIELD-2012-BP-10442BP

PATIENT
  Age: 64 Year
  Sex: Female
  Weight: 91.63 kg

DRUGS (7)
  1. PRADAXA [Suspect]
     Indication: ATRIAL FIBRILLATION
     Dosage: 300 MG
     Route: 048
     Dates: start: 20110428, end: 201201
  2. PRADAXA [Suspect]
     Dosage: 150 MG
     Route: 048
     Dates: start: 201201, end: 20120606
  3. POTASSIUM [Concomitant]
     Dates: start: 20071129, end: 20120529
  4. NEXIUM [Concomitant]
     Dates: start: 20080508, end: 20120529
  5. SPIRONOLACTONE [Concomitant]
  6. METOPROLOL [Concomitant]
  7. BUMETANIDE [Concomitant]

REACTIONS (5)
  - Haematocrit decreased [Recovered/Resolved]
  - Haemorrhoidal haemorrhage [Recovered/Resolved]
  - Rectal haemorrhage [Recovered/Resolved]
  - Gastrointestinal haemorrhage [Unknown]
  - Dyspepsia [Not Recovered/Not Resolved]
